FAERS Safety Report 10457238 (Version 1)
Quarter: 2014Q3

REPORT INFORMATION
  Report Type: Spontaneous
  Country: JP (occurrence: JP)
  Receive Date: 20140916
  Receipt Date: 20140916
  Transmission Date: 20150326
  Serious: Yes (Other)
  Sender: FDA-Public Use
  Company Number: JP-VERTEX PHARMACEUTICALS-2014-003904

PATIENT
  Age: 59 Year
  Sex: Male

DRUGS (1)
  1. TELAVIC [Suspect]
     Active Substance: TELAPREVIR
     Indication: PRODUCT USED FOR UNKNOWN INDICATION
     Dosage: UNK
     Route: 048
     Dates: start: 201208, end: 201210

REACTIONS (2)
  - Infection [Unknown]
  - Erythema multiforme [Unknown]
